FAERS Safety Report 4537654-5 (Version None)
Quarter: 2004Q4

REPORT INFORMATION
  Report Type: 
  Country: None (occurrence: None)
  Receive Date: 20041216
  Receipt Date: 20040403
  Transmission Date: 20050328
  Serious: Yes (Hospitalization)
  Sender: FDA-Public Use
  Company Number: CHPA2004US01865

PATIENT
  Age: 52 Year
  Sex: Female
  Weight: 73.9 kg

DRUGS (4)
  1. TRANSDERM SCOP [Suspect]
  2. VALIUM [Concomitant]
  3. DYAZIDE [Concomitant]
  4. ANTIVERT ^PFIZER^ (MECLOZINE HYDROCHLORIDE) [Concomitant]

REACTIONS (2)
  - DIZZINESS [None]
  - DRUG WITHDRAWAL SYNDROME [None]
